FAERS Safety Report 17268735 (Version 2)
Quarter: 2020Q1

REPORT INFORMATION
  Report Type: Spontaneous
  Country: CN (occurrence: CN)
  Receive Date: 20200114
  Receipt Date: 20200121
  Transmission Date: 20200409
  Serious: Yes (Other)
  Sender: FDA-Public Use
  Company Number: CN-PFIZER INC-2020015349

PATIENT
  Age: 30 Year
  Sex: Female

DRUGS (4)
  1. CALCIUM FOLINATE [Suspect]
     Active Substance: LEUCOVORIN CALCIUM
     Indication: ADENOCARCINOMA GASTRIC
     Dosage: 0.1 G, CYCLIC ( FIVE CYCLES ,DAYS 1-5)
  2. OXALIPLATIN. [Suspect]
     Active Substance: OXALIPLATIN
     Indication: ADENOCARCINOMA GASTRIC
     Dosage: 150 MG, CYCLIC( FIVE CYCLES 1D)
  3. FLUOROURACIL. [Suspect]
     Active Substance: FLUOROURACIL
     Indication: ADENOCARCINOMA GASTRIC
     Dosage: 0.5 G, CYCLIC (FIVE CYCLES, DAYS 1-5)
  4. EPIRUBICIN HCL [Suspect]
     Active Substance: EPIRUBICIN HYDROCHLORIDE
     Indication: ADENOCARCINOMA GASTRIC
     Dosage: 60 MG, CYCLIC (FIVE CYCLES DAY 1)

REACTIONS (3)
  - Gastrointestinal carcinoma [Recovered/Resolved]
  - Neuroectodermal neoplasm [Recovered/Resolved]
  - Second primary malignancy [Recovered/Resolved]
